FAERS Safety Report 4804955-2 (Version None)
Quarter: 2005Q4

REPORT INFORMATION
  Report Type: 
  Country: None (occurrence: None)
  Receive Date: 20051017
  Receipt Date: 20051007
  Transmission Date: 20060501
  Serious: Yes (Other)
  Sender: FDA-Public Use
  Company Number: 2005-07-0733

PATIENT
  Age: 44 Year
  Sex: Male
  Weight: 91 kg

DRUGS (5)
  1. INTRON A (INTERFERON ALFA-2B RECOMBINANT) INJECTABLE [Suspect]
     Dosage: 40-20MIU/M^2
     Dates: start: 20050217, end: 20050301
  2. INTRON A (INTERFERON ALFA-2B RECOMBINANT) INJECTABLE [Suspect]
     Dosage: 40-20MIU/M^2
     Dates: start: 20050301, end: 20050301
  3. INTRON A (INTERFERON ALFA-2B RECOMBINANT) INJECTABLE [Suspect]
     Dosage: 40-20MIU/M^2
     Dates: start: 20050217, end: 20050720
  4. INTRON A (INTERFERON ALFA-2B RECOMBINANT) INJECTABLE [Suspect]
     Dosage: 40-20MIU/M^2
     Dates: start: 20050321, end: 20050720
  5. ZOPICLONE [Concomitant]

REACTIONS (5)
  - HEPATIC ENZYME INCREASED [None]
  - INFLUENZA LIKE ILLNESS [None]
  - RETINAL EXUDATES [None]
  - RETINAL HAEMORRHAGE [None]
  - VISUAL FIELD DEFECT [None]
